FAERS Safety Report 4912682-6 (Version None)
Quarter: 2006Q1

REPORT INFORMATION
  Report Type: 
  Country: None (occurrence: None)
  Receive Date: 20060215
  Receipt Date: 20050829
  Transmission Date: 20060701
  Serious: Yes (Hospitalization, Other)
  Sender: FDA-Public Use
  Company Number: US-MERCK-0508USA04632

PATIENT
  Age: 58 Year
  Sex: Female
  Weight: 86 kg

DRUGS (1)
  1. VIOXX [Suspect]
     Indication: RHEUMATOID ARTHRITIS
     Route: 048
     Dates: start: 20010101, end: 20040901

REACTIONS (9)
  - ANGIOCENTRIC LYMPHOMA [None]
  - ASTHMA [None]
  - BREAST DISORDER FEMALE [None]
  - CEREBROVASCULAR ACCIDENT [None]
  - HEAD INJURY [None]
  - HEADACHE [None]
  - HYPOAESTHESIA [None]
  - NECK PAIN [None]
  - TRANSIENT ISCHAEMIC ATTACK [None]
